FAERS Safety Report 9595407 (Version 2)
Quarter: 2014Q2

REPORT INFORMATION
  Report Type: Spontaneous
  Country: US (occurrence: None)
  Receive Date: 20131002
  Receipt Date: 20140404
  Transmission Date: 20141212
  Serious: Yes (Other)
  Sender: FDA-Public Use
  Company Number: 2013-US-001263

PATIENT
  Age: 35 Year
  Sex: Male

DRUGS (1)
  1. XYREM [Suspect]
     Indication: NARCOLEPSY
     Route: 048
     Dates: start: 20121002, end: 201210

REACTIONS (5)
  - Tendon operation [None]
  - Fall [None]
  - Tendon rupture [None]
  - Post procedural haematoma [None]
  - Procedural pain [None]
